FAERS Safety Report 6163878-X (Version None)
Quarter: 2009Q2

REPORT INFORMATION
  Report Type: 
  Country: None (occurrence: None)
  Receive Date: 20090422
  Receipt Date: 20090414
  Transmission Date: 20091009
  Serious: Yes (Life-Threatening, Hospitalization, Disabling, Other)
  Sender: FDA-Public Use
  Company Number: US-MERCK-0902USA00743

PATIENT
  Age: 56 Year
  Sex: Male
  Weight: 89 kg

DRUGS (1)
  1. FOSAMAX PLUS D [Suspect]
     Indication: OSTEOPENIA
     Route: 048
     Dates: start: 20070516, end: 20080801

REACTIONS (5)
  - BONE PAIN [None]
  - DYSPNOEA [None]
  - FALL [None]
  - MUSCULAR WEAKNESS [None]
  - TACHYCARDIA [None]
